FAERS Safety Report 14034897 (Version 2)
Quarter: 2017Q4

REPORT INFORMATION
  Report Type: Spontaneous
  Country: FR (occurrence: FR)
  Receive Date: 20171003
  Receipt Date: 20171004
  Transmission Date: 20180321
  Serious: Yes (Congenital Anomaly)
  Sender: FDA-Public Use
  Company Number: FR-009507513-1709FRA015100

PATIENT
  Sex: Female

DRUGS (4)
  1. AERIUS [Suspect]
     Active Substance: DESLORATADINE
     Indication: PRODUCT USED FOR UNKNOWN INDICATION
     Dosage: 1 DF, QD
     Route: 064
  2. CERIS [Suspect]
     Active Substance: TROSPIUM CHLORIDE
     Indication: DOUBLE URETER
     Dosage: 2 DF, QD
     Route: 064
     Dates: start: 20160429, end: 20170125
  3. XANAX [Suspect]
     Active Substance: ALPRAZOLAM
     Indication: PRODUCT USED FOR UNKNOWN INDICATION
     Dosage: 1 DF, QD
     Route: 064
     Dates: start: 20160429, end: 20170125
  4. LAROXYL [Suspect]
     Active Substance: AMITRIPTYLINE HYDROCHLORIDE
     Indication: PRODUCT USED FOR UNKNOWN INDICATION
     Dosage: STRENGTH: 40 MG/ML, 15 DROPS, QD
     Route: 064
     Dates: start: 20160429, end: 20170125

REACTIONS (1)
  - Polydactyly [Not Recovered/Not Resolved]
